FAERS Safety Report 8990517 (Version 1)
Quarter: 2012Q4

REPORT INFORMATION
  Report Type: 
  Country: US (occurrence: US)
  Receive Date: 20121228
  Receipt Date: 20121228
  Transmission Date: 20130627
  Serious: Yes (Hospitalization)
  Sender: FDA-Public Use
  Company Number: US-MYLANLABS-2012S1026171

PATIENT
  Age: 65 Year
  Sex: Male

DRUGS (1)
  1. IRBESARTAN [Suspect]
     Route: 065

REACTIONS (4)
  - Angioedema [Recovering/Resolving]
  - Swollen tongue [Recovering/Resolving]
  - Oedema mouth [Recovering/Resolving]
  - Tongue abscess [Recovered/Resolved]
